FAERS Safety Report 7661764-7 (Version None)
Quarter: 2011Q3

REPORT INFORMATION
  Report Type: 
  Country: None (occurrence: None)
  Receive Date: 20110805
  Receipt Date: 20110802
  Transmission Date: 20111222
  Serious: Yes (Death)
  Sender: FDA-Public Use
  Company Number: US-CELGENEUS-163-21880-11070756

PATIENT
  Sex: Male

DRUGS (4)
  1. REVLIMID [Suspect]
     Dosage: 10 MILLIGRAM
     Route: 048
     Dates: start: 20110619, end: 20110629
  2. ANTIBIOTICS [Concomitant]
  3. PLATELETS [Concomitant]
     Route: 041
  4. RED BLOOD CELLS [Concomitant]
     Route: 041

REACTIONS (1)
  - CHRONIC LYMPHOCYTIC LEUKAEMIA [None]
